FAERS Safety Report 11783260 (Version 1)
Quarter: 2015Q4

REPORT INFORMATION
  Report Type: Report from Study
  Country: MY (occurrence: MY)
  Receive Date: 20151127
  Receipt Date: 20151127
  Transmission Date: 20160305
  Serious: Yes (Hospitalization)
  Sender: FDA-Public Use
  Company Number: PHHY2015MY138025

PATIENT
  Age: 48 Year
  Sex: Male

DRUGS (1)
  1. GLIVEC [Suspect]
     Active Substance: IMATINIB MESYLATE
     Indication: CHRONIC MYELOID LEUKAEMIA
     Dosage: 400 MG, QD
     Route: 065
     Dates: start: 20150606, end: 20151020

REACTIONS (2)
  - Skin reaction [Recovering/Resolving]
  - Drug intolerance [Recovering/Resolving]

NARRATIVE: CASE EVENT DATE: 201509
